FAERS Safety Report 8834723 (Version 2)
Quarter: 2014Q2

REPORT INFORMATION
  Report Type: Report from Study
  Country: SA (occurrence: SA)
  Receive Date: 20121010
  Receipt Date: 20140613
  Transmission Date: 20141212
  Serious: Yes (Other)
  Sender: FDA-Public Use
  Company Number: SA-ROCHE-1139807

PATIENT
  Sex: 0

DRUGS (8)
  1. RITUXIMAB [Suspect]
     Indication: JUVENILE IDIOPATHIC ARTHRITIS
     Route: 065
  2. RITUXIMAB [Suspect]
     Indication: SYSTEMIC LUPUS ERYTHEMATOSUS
  3. RITUXIMAB [Suspect]
     Indication: VASCULITIS
  4. RITUXIMAB [Suspect]
     Indication: AUTOINFLAMMATORY DISEASE
  5. TOCILIZUMAB [Suspect]
     Indication: JUVENILE IDIOPATHIC ARTHRITIS
     Route: 065
  6. TOCILIZUMAB [Suspect]
     Indication: SYSTEMIC LUPUS ERYTHEMATOSUS
  7. TOCILIZUMAB [Suspect]
     Indication: VASCULITIS
  8. TOCILIZUMAB [Suspect]
     Indication: AUTOINFLAMMATORY DISEASE

REACTIONS (4)
  - Histiocytosis haematophagic [Unknown]
  - Infection [Unknown]
  - Infusion related reaction [Unknown]
  - Autoantibody positive [Unknown]
